FAERS Safety Report 6440773-X (Version None)
Quarter: 2009Q4

REPORT INFORMATION
  Report Type: 
  Country: None (occurrence: None)
  Receive Date: 20091116
  Receipt Date: 20091103
  Transmission Date: 20100525
  Serious: Yes (Other)
  Sender: FDA-Public Use
  Company Number: JP-RANBAXY-2009RR-28982

PATIENT
  Age: 68 Year
  Sex: Male

DRUGS (1)
  1. PHENOBARBITAL [Suspect]
     Indication: EPILEPSY

REACTIONS (2)
  - CYTOMEGALOVIRUS INFECTION [None]
  - DRUG RASH WITH EOSINOPHILIA AND SYSTEMIC SYMPTOMS [None]
